FAERS Safety Report 10619530 (Version 2)
Quarter: 2015Q2

REPORT INFORMATION
  Report Type: Spontaneous
  Country: US (occurrence: US)
  Receive Date: 20141202
  Receipt Date: 20150512
  Transmission Date: 20150821
  Serious: Yes (Other)
  Sender: FDA-Public Use
  Company Number: US-PFIZER INC-2014325658

PATIENT
  Age: 72 Year
  Sex: Female
  Weight: 67 kg

DRUGS (10)
  1. ALPRAZOLAM. [Concomitant]
     Active Substance: ALPRAZOLAM
     Dosage: TWO 0.5 PILLS AT BEDTIME
  2. LISINOPRIL. [Concomitant]
     Active Substance: LISINOPRIL
     Dosage: 5 MG, 1X/DAY
  3. EFFEXOR XR [Suspect]
     Active Substance: VENLAFAXINE HYDROCHLORIDE
     Indication: ANXIETY
     Dosage: 150 MG, DAILY
     Route: 048
     Dates: start: 201411
  4. LYRICA [Suspect]
     Active Substance: PREGABALIN
     Indication: MUSCLE SPASMS
  5. GLEEVEC [Concomitant]
     Active Substance: IMATINIB MESYLATE
     Dosage: 400 MG, 1X/DAY (PER NIGHT)
     Dates: start: 200201
  6. ASPIRIN. [Concomitant]
     Active Substance: ASPIRIN
     Dosage: 81 MG, 1X/DAY
  7. EFFEXOR XR [Suspect]
     Active Substance: VENLAFAXINE HYDROCHLORIDE
     Indication: DEPRESSION
     Dosage: 300 MG, 1X/DAY
     Route: 048
     Dates: start: 2005, end: 201411
  8. LYRICA [Suspect]
     Active Substance: PREGABALIN
     Indication: PAIN IN EXTREMITY
     Dosage: 200 MG, 1X/DAY
  9. LANTUS [Concomitant]
     Active Substance: INSULIN GLARGINE
     Dosage: BETWEEN 27 AND 30 UNITS PER NIGHT
  10. APIDRA [Concomitant]
     Active Substance: INSULIN GLULISINE
     Dosage: BEFORE MEALS 18-20 UNITS

REACTIONS (3)
  - Migraine with aura [Not Recovered/Not Resolved]
  - Visual impairment [Not Recovered/Not Resolved]
  - Central nervous system lesion [Not Recovered/Not Resolved]

NARRATIVE: CASE EVENT DATE: 201410
